FAERS Safety Report 8582837 (Version 3)
Quarter: 2014Q4

REPORT INFORMATION
  Report Type: Report from Study
  Country: US (occurrence: US)
  Receive Date: 20120529
  Receipt Date: 20141023
  Transmission Date: 20150529
  Serious: Yes (Hospitalization)
  Sender: FDA-Public Use
  Company Number: US-ASTRAZENECA-2012SE32383

PATIENT
  Age: 49 Year
  Sex: Male
  Weight: 73.2 kg

DRUGS (2)
  1. MIDAZOLAM [Suspect]
     Active Substance: MIDAZOLAM\MIDAZOLAM HYDROCHLORIDE
     Route: 048
     Dates: start: 20120502, end: 20120502
  2. VANDETANIB. [Suspect]
     Active Substance: VANDETANIB
     Route: 048
     Dates: start: 20120517, end: 20120517

REACTIONS (1)
  - ECG signs of myocardial ischaemia [Recovered/Resolved]

NARRATIVE: CASE EVENT DATE: 20120517
